FAERS Safety Report 9398823 (Version 2)
Quarter: 2013Q3

REPORT INFORMATION
  Report Type: Spontaneous
  Country: IL (occurrence: IL)
  Receive Date: 20130712
  Receipt Date: 20130823
  Transmission Date: 20140515
  Serious: Yes (Hospitalization)
  Sender: FDA-Public Use
  Company Number: IL-PURDUE-DEU-2013-0011512

PATIENT
  Age: 60 Year
  Sex: Female
  Weight: 59 kg

DRUGS (6)
  1. OXYCODONE HCL PR TABLET [Suspect]
     Indication: CANCER PAIN
     Dosage: 40 MG, BID
     Route: 048
     Dates: start: 20130429
  2. OPTALGIN [Concomitant]
     Indication: CANCER PAIN
     Dosage: 10 MG, DAILY
     Route: 048
     Dates: start: 20130429
  3. FENTANYL [Concomitant]
     Indication: CANCER PAIN
     Dosage: 25 MG, DAILY
     Route: 058
     Dates: start: 20130414
  4. NORMAL SALINE [Concomitant]
     Indication: PROPHYLAXIS
     Dosage: 1 L, DAILY
     Route: 042
     Dates: start: 20130429, end: 20130429
  5. LAXADIN [Concomitant]
     Indication: CONSTIPATION
     Dosage: 10 G, DAILY
     Route: 048
     Dates: start: 20130429
  6. CARTIA                             /00002701/ [Concomitant]
     Indication: MYOCARDIAL ISCHAEMIA
     Dosage: 100 MG, DAILY
     Route: 048
     Dates: start: 20121113

REACTIONS (1)
  - Haematemesis [Recovered/Resolved]
